FAERS Safety Report 5186107-2 (Version None)
Quarter: 2006Q4

REPORT INFORMATION
  Report Type: 
  Country: None (occurrence: None)
  Receive Date: 20061220
  Receipt Date: 20061024
  Transmission Date: 20070319
  Serious: No
  Sender: FDA-Public Use
  Company Number: US-GLAXOSMITHKLINE-A0624696A

PATIENT
  Age: 58 Year
  Sex: Female

DRUGS (4)
  1. NICODERM CQ [Suspect]
  2. NICODERM CQ [Suspect]
  3. COMMIT [Suspect]
  4. NICORETTE [Suspect]

REACTIONS (6)
  - APPLICATION SITE IRRITATION [None]
  - APPLICATION SITE PRURITUS [None]
  - APPLICATION SITE ULCER [None]
  - HYPERSENSITIVITY [None]
  - MALAISE [None]
  - VOMITING [None]
